FAERS Safety Report 15777388 (Version 1)
Quarter: 2018Q4

REPORT INFORMATION
  Report Type: Report from Study
  Country: GB (occurrence: GB)
  Receive Date: 20181231
  Receipt Date: 20181231
  Transmission Date: 20190205
  Serious: Yes (Death)
  Sender: FDA-Public Use
  Company Number: GB-ROCHE-2237070

PATIENT
  Age: 65 Year
  Sex: Male
  Weight: 51.2 kg

DRUGS (3)
  1. COBIMETINIB. [Suspect]
     Active Substance: COBIMETINIB
     Indication: NON-SMALL CELL LUNG CANCER METASTATIC
     Dosage: COBIMETINIB IS ADMINISTERED ORALLY ON DAYS 1-21 OF A 28 DAY CYCLE AS PER PROTOCOL.?DATE OF LAST DOSE
     Route: 048
     Dates: start: 20181010
  2. ATEZOLIZUMAB. [Suspect]
     Active Substance: ATEZOLIZUMAB
     Indication: NON-SMALL CELL LUNG CANCER METASTATIC
     Dosage: ATEZOLIZUMAB IV ON DAY 1 AND 15 OF EACH 28 DAY CYCLE AS PER PROTOCOL.?DATE OF LAST DOSE (840 MG) OF
     Route: 042
     Dates: start: 20181010
  3. SEVREDOL [Concomitant]
     Active Substance: MORPHINE
     Route: 065
     Dates: start: 20181118

REACTIONS (1)
  - Lower respiratory tract infection [Fatal]

NARRATIVE: CASE EVENT DATE: 20181224
